FAERS Safety Report 7344782-8 (Version None)
Quarter: 2011Q1

REPORT INFORMATION
  Report Type: 
  Country: None (occurrence: None)
  Receive Date: 20110310
  Receipt Date: 20110228
  Transmission Date: 20110831
  Serious: Yes (Hospitalization)
  Sender: FDA-Public Use
  Company Number: US-BAXTER-2011BH004357

PATIENT
  Age: 4 Month
  Sex: Male

DRUGS (2)
  1. STERILE WATER [Suspect]
     Indication: MECHANICAL VENTILATION
     Route: 055
     Dates: start: 20101201, end: 20101201
  2. STERILE WATER [Suspect]
     Route: 055
     Dates: start: 20101201

REACTIONS (1)
  - INFECTION [None]
